FAERS Safety Report 18754596 (Version 3)
Quarter: 2021Q4

REPORT INFORMATION
  Report Type: Report from Study
  Country: US (occurrence: US)
  Receive Date: 20210119
  Receipt Date: 20211225
  Transmission Date: 20220303
  Serious: Yes (Hospitalization, Other)
  Sender: FDA-Public Use
  Company Number: US-NOVARTISTESTPH-NVSC2021US008949

PATIENT
  Sex: Female

DRUGS (1)
  1. PROMACTA [Suspect]
     Active Substance: ELTROMBOPAG OLAMINE
     Indication: Thrombocytopenia
     Dosage: 25 MG, QD
     Route: 048
     Dates: start: 202009

REACTIONS (20)
  - Acute kidney injury [Unknown]
  - Anaesthetic complication neurological [Unknown]
  - Cholelithiasis [Unknown]
  - Biliary tract infection [Unknown]
  - Biliary dilatation [Unknown]
  - Arthralgia [Unknown]
  - Pain in extremity [Unknown]
  - Hyponatraemia [Recovered/Resolved]
  - Peripheral artery stenosis [Unknown]
  - Coeliac artery stenosis [Unknown]
  - Mesenteric artery stenosis [Unknown]
  - Pneumobilia [Unknown]
  - Memory impairment [Unknown]
  - Leukocytosis [Unknown]
  - Peripheral arterial occlusive disease [Unknown]
  - Agitation [Unknown]
  - Impulsive behaviour [Unknown]
  - Hepatic steatosis [Unknown]
  - Arteriosclerosis [Unknown]
  - Platelet count increased [Unknown]
